FAERS Safety Report 6843519-6 (Version None)
Quarter: 2010Q3

REPORT INFORMATION
  Report Type: 
  Country: None (occurrence: None)
  Receive Date: 20100715
  Receipt Date: 20100706
  Transmission Date: 20110219
  Serious: Yes (Hospitalization)
  Sender: FDA-Public Use
  Company Number: PL-MEDIMMUNE-MEDI-0011245

PATIENT
  Sex: Male
  Weight: 1.92 kg

DRUGS (2)
  1. SYNAGIS [Suspect]
     Indication: BRONCHOPULMONARY DYSPLASIA
     Route: 030
     Dates: start: 20100112, end: 20100112
  2. SYNAGIS [Suspect]
     Route: 030
     Dates: start: 20100309, end: 20100309

REACTIONS (3)
  - BRONCHOPULMONARY DYSPLASIA [None]
  - ILL-DEFINED DISORDER [None]
  - RESPIRATORY DISORDER [None]
